FAERS Safety Report 13431072 (Version 2)
Quarter: 2017Q2

REPORT INFORMATION
  Report Type: Spontaneous
  Country: EG (occurrence: EG)
  Receive Date: 20170412
  Receipt Date: 20170414
  Transmission Date: 20170830
  Serious: Yes (Other)
  Sender: FDA-Public Use
  Company Number: PHHY2017EG051221

PATIENT
  Age: 22 Year
  Sex: Male

DRUGS (2)
  1. CIPRA PRO [Concomitant]
     Active Substance: ESCITALOPRAM OXALATE
     Indication: SEDATIVE THERAPY
     Dosage: UNK
     Route: 048
     Dates: start: 201504
  2. GILENYA [Suspect]
     Active Substance: FINGOLIMOD HYDROCHLORIDE
     Indication: MULTIPLE SCLEROSIS
     Dosage: UNK UNK, QD
     Route: 048
     Dates: start: 201701

REACTIONS (9)
  - Lipid metabolism disorder [Unknown]
  - Abdominal distension [Recovering/Resolving]
  - White blood cell count decreased [Unknown]
  - Abdominal pain [Unknown]
  - Liver disorder [Unknown]
  - Fatigue [Recovering/Resolving]
  - Muscle atrophy [Unknown]
  - Blood triglycerides increased [Unknown]
  - Constipation [Recovering/Resolving]

NARRATIVE: CASE EVENT DATE: 201703
